FAERS Safety Report 7122796-0 (Version None)
Quarter: 2010Q4

REPORT INFORMATION
  Report Type: 
  Country: None (occurrence: None)
  Receive Date: 20101124
  Receipt Date: 20101118
  Transmission Date: 20110411
  Serious: Yes (Other)
  Sender: FDA-Public Use
  Company Number: FR-ALLERGAN-1015091US

PATIENT
  Age: 66 Year
  Sex: Female

DRUGS (3)
  1. BIMATOPROST AND TIMOLOL MALEATE [Suspect]
     Indication: GLAUCOMA
     Dosage: 1 DF, QD
     Route: 047
     Dates: start: 20061101, end: 20090501
  2. TIMOLOL                            /00371202/ [Concomitant]
     Indication: GLAUCOMA
  3. XALATAN [Concomitant]
     Indication: GLAUCOMA

REACTIONS (5)
  - CONJUNCTIVITIS [None]
  - EYE IRRITATION [None]
  - EYE OEDEMA [None]
  - FACE OEDEMA [None]
  - TONGUE OEDEMA [None]
